FAERS Safety Report 9826378 (Version 1)
Quarter: 2013Q4

REPORT INFORMATION
  Report Type: Spontaneous
  Country: US (occurrence: None)
  Receive Date: 20131223
  Receipt Date: 20131223
  Transmission Date: 20140711
  Serious: Yes (Other)
  Sender: FDA-Public Use
  Company Number: 218704LEO

PATIENT
  Age: 71 Year
  Sex: Female

DRUGS (4)
  1. PICATO [Suspect]
     Indication: SKIN CANCER
     Dates: start: 20120723
  2. SYNTHROID(LEVOTHYROXINE SODIUM) [Concomitant]
  3. OMEPRAZOLE(OMEPRAZOLE) [Concomitant]
  4. ANTIBIOTIC(ANTIBIOTIC) [Concomitant]

REACTIONS (4)
  - Application site infection [None]
  - Application site vesicles [None]
  - Application site erythema [None]
  - Off label use [None]
